FAERS Safety Report 14223800 (Version 2)
Quarter: 2017Q4

REPORT INFORMATION
  Report Type: Report from Study
  Country: US (occurrence: US)
  Receive Date: 20171125
  Receipt Date: 20171128
  Transmission Date: 20180321
  Serious: No
  Sender: FDA-Public Use
  Company Number: PHEH2017US037932

PATIENT
  Age: 63 Year
  Sex: Male

DRUGS (1)
  1. COSENTYX [Suspect]
     Active Substance: SECUKINUMAB
     Indication: PSORIASIS
     Dosage: 300 MG, QMO
     Route: 058
     Dates: start: 20170519

REACTIONS (5)
  - Middle ear effusion [Unknown]
  - Inappropriate schedule of drug administration [Unknown]
  - Nasal congestion [Unknown]
  - Nasopharyngitis [Unknown]
  - Dysphonia [Unknown]

NARRATIVE: CASE EVENT DATE: 20170519
